FAERS Safety Report 8774395 (Version 3)
Quarter: 2012Q4

REPORT INFORMATION
  Report Type: 
  Country: US (occurrence: US)
  Receive Date: 20120907
  Receipt Date: 20121017
  Transmission Date: 20130627
  Serious: No
  Sender: FDA-Public Use
  Company Number: US-VERTEX PHARMACEUTICAL INC.-2012-020220

PATIENT
  Age: 57 Year
  Sex: Male
  Weight: 149 kg

DRUGS (8)
  1. VX-950 [Suspect]
     Indication: HEPATITIS C
     Dosage: 750 mg, UNK
     Route: 048
     Dates: start: 20120727
  2. RIBAVIRIN [Concomitant]
     Indication: HEPATITIS C
     Dosage: 600 mg, bid
     Dates: start: 20120727
  3. RIBAVIRIN [Concomitant]
     Dosage: 200mg  in am and 600mg in pm
     Route: 048
     Dates: start: 20120930
  4. PEGASYS [Concomitant]
     Indication: HEPATITIS C
     Dosage: 180 ?g, UNK
     Route: 058
     Dates: start: 20120727
  5. CLONAZEPAM [Concomitant]
     Indication: ANXIETY
     Dosage: 0.5 to1 mg
     Route: 048
  6. HYDROCODONE [Concomitant]
     Dosage: UNK, prn
     Route: 048
  7. METFORMIN [Concomitant]
     Indication: DIABETES MELLITUS
     Dosage: 1000 mg, bid
     Route: 048
  8. MIRTAZAPINE [Concomitant]
     Indication: DEPRESSION
     Dosage: 30 mg, qd
     Route: 048

REACTIONS (3)
  - Depression [Not Recovered/Not Resolved]
  - Ligament sprain [Not Recovered/Not Resolved]
  - Anaemia [Not Recovered/Not Resolved]
